FAERS Safety Report 9164410 (Version 1)
Quarter: 2013Q1

REPORT INFORMATION
  Report Type: Spontaneous
  Country: IT (occurrence: None)
  Receive Date: 20130226
  Receipt Date: 20130226
  Transmission Date: 20140127
  Serious: Yes (Other)
  Sender: FDA-Public Use
  Company Number: GER/ITL/13/0028132

PATIENT
  Age: 68 Year
  Sex: Female

DRUGS (6)
  1. CITALOPRAM [Suspect]
     Dosage: 600 MG, TOTAL, ORAL
     Route: 048
     Dates: start: 20120814, end: 20120814
  2. LANSOX (LANSOPRAZOLE) [Concomitant]
  3. ZYLORIC (ALLOPURINOL) [Concomitant]
  4. EXOCIN (OFLOXACIN) [Concomitant]
  5. MUSCORIL (THIOCOLCHICOSIDE) [Concomitant]
  6. MOVICOL [Concomitant]

REACTIONS (4)
  - Somnolence [None]
  - Nausea [None]
  - Muscle rigidity [None]
  - Drug administration error [None]
